FAERS Safety Report 5079224-9 (Version None)
Quarter: 2006Q3

REPORT INFORMATION
  Report Type: 
  Country: None (occurrence: None)
  Receive Date: 20060814
  Receipt Date: 20060809
  Transmission Date: 20061208
  Serious: Yes (Hospitalization)
  Sender: FDA-Public Use
  Company Number: FR-MERCK-0608FRA00020

PATIENT
  Age: 84 Year
  Sex: Female
  Weight: 48 kg

DRUGS (10)
  1. COZAAR [Suspect]
     Indication: HYPERTENSION
     Route: 048
     Dates: end: 20060710
  2. FUROSEMIDE [Suspect]
     Indication: HYPERTENSION
     Route: 048
     Dates: end: 20060710
  3. TETRAZEPAM [Concomitant]
     Route: 048
     Dates: end: 20060710
  4. RISEDRONATE SODIUM [Concomitant]
     Indication: OSTEOPOROSIS
     Route: 048
     Dates: end: 20060710
  5. AMIODARONE [Concomitant]
     Route: 048
     Dates: end: 20060710
  6. MORPHINE SULFATE [Concomitant]
     Indication: RHEUMATOID ARTHRITIS
     Route: 048
     Dates: end: 20060710
  7. PREDNISONE [Concomitant]
     Indication: RHEUMATOID ARTHRITIS
     Route: 048
  8. ASPIRIN [Concomitant]
     Indication: THROMBOSIS PROPHYLAXIS
     Route: 048
  9. OMEPRAZOLE [Concomitant]
     Indication: PROPHYLAXIS AGAINST GASTROINTESTINAL ULCER
     Route: 048
  10. CALCIUM CARBONATE [Concomitant]
     Indication: OSTEOPOROSIS
     Route: 048

REACTIONS (4)
  - ARTHRALGIA [None]
  - DEHYDRATION [None]
  - DIARRHOEA [None]
  - RENAL FAILURE ACUTE [None]
